FAERS Safety Report 23464313 (Version 2)
Quarter: 2024Q1

REPORT INFORMATION
  Report Type: Report from Study
  Country: US (occurrence: US)
  Receive Date: 20240201
  Receipt Date: 20240210
  Transmission Date: 20240410
  Serious: Yes (Death, Hospitalization)
  Sender: FDA-Public Use
  Company Number: US-ABBVIE-5617395

PATIENT
  Age: 75 Year
  Sex: Male
  Weight: 108 kg

DRUGS (4)
  1. RINVOQ [Suspect]
     Active Substance: UPADACITINIB
     Indication: Rheumatoid arthritis
     Dosage: 1 TABLET?FORM STRENGTH: 30 MILLIGRAM?START DATE TEXT: FEB OR MAR 2023
     Route: 048
     Dates: start: 2023, end: 20240121
  2. LANTUS [Concomitant]
     Active Substance: INSULIN GLARGINE
     Indication: Diabetes mellitus
  3. LOSARTAN [Concomitant]
     Active Substance: LOSARTAN
     Indication: Hypotension
  4. METFORMIN [Concomitant]
     Active Substance: METFORMIN HYDROCHLORIDE
     Indication: Diabetes mellitus

REACTIONS (6)
  - Septic shock [Fatal]
  - Arthralgia [Fatal]
  - Post procedural sepsis [Fatal]
  - Diverticular perforation [Fatal]
  - Pyrexia [Fatal]
  - Neutropenia [Fatal]

NARRATIVE: CASE EVENT DATE: 20240101
